FAERS Safety Report 13174236 (Version 2)
Quarter: 2018Q3

REPORT INFORMATION
  Report Type: Spontaneous
  Country: FR (occurrence: FR)
  Receive Date: 20170131
  Receipt Date: 20180726
  Transmission Date: 20181010
  Serious: Yes (Life-Threatening, Other)
  Sender: FDA-Public Use
  Company Number: FR-AMGEN-FRASP2017014937

PATIENT
  Age: 64 Year
  Sex: Male
  Weight: 66 kg

DRUGS (9)
  1. ORENCIA [Suspect]
     Active Substance: ABATACEPT
     Indication: RHEUMATOID ARTHRITIS
     Dosage: 1 DOSE FORM EVERY 15 DAYS
     Route: 058
     Dates: start: 201601, end: 201611
  2. MABTHERA [Suspect]
     Active Substance: RITUXIMAB
     Indication: RHEUMATOID ARTHRITIS
     Dosage: UNK
     Route: 042
     Dates: start: 201105, end: 201308
  3. ENBREL [Suspect]
     Active Substance: ETANERCEPT
     Indication: RHEUMATOID ARTHRITIS
     Dosage: 25 MG, UNK
     Route: 058
     Dates: start: 20090410, end: 201007
  4. ROACTEMRA [Suspect]
     Active Substance: TOCILIZUMAB
     Indication: RHEUMATOID ARTHRITIS
     Dosage: 6 MG/KG, UNK
     Route: 042
     Dates: start: 201008
  5. ROACTEMRA [Suspect]
     Active Substance: TOCILIZUMAB
     Dosage: 8 MG/KG, UNK
     Route: 042
     Dates: start: 201012, end: 201101
  6. CORTANCYL [Concomitant]
     Active Substance: PREDNISONE
  7. PLAVIX [Concomitant]
     Active Substance: CLOPIDOGREL BISULFATE
  8. ZOFENIL [Concomitant]
     Active Substance: ZOFENOPRIL
  9. LEVOTHYROX [Concomitant]
     Active Substance: LEVOTHYROXINE

REACTIONS (3)
  - Oesophageal adenocarcinoma [Not Recovered/Not Resolved]
  - Barrett^s oesophagus [Unknown]
  - Treatment failure [Unknown]

NARRATIVE: CASE EVENT DATE: 201611
